FAERS Safety Report 7794954-3 (Version None)
Quarter: 2011Q4

REPORT INFORMATION
  Report Type: 
  Country: None (occurrence: None)
  Receive Date: 20111004
  Receipt Date: 20110926
  Transmission Date: 20120403
  Serious: Yes (Other)
  Sender: FDA-Public Use
  Company Number: FR-AMGEN-FRASP2011049430

PATIENT
  Sex: Male
  Weight: 83 kg

DRUGS (16)
  1. AVODART [Concomitant]
     Dosage: UNK UNK, QD
  2. KEPPRA [Concomitant]
     Dosage: 1000 MG, UNK
  3. NEXIUM [Concomitant]
  4. EZETIMIBE [Concomitant]
  5. ARANESP [Suspect]
     Indication: ANAEMIA
     Dosage: 30 MUG, QWK
     Route: 058
     Dates: start: 20110922
  6. REBETOL [Concomitant]
     Indication: HEPATITIS C
     Route: 048
  7. VIRAFERONPEG [Concomitant]
     Dosage: UNK UNK, QWK
  8. ALLOPURINOL [Concomitant]
     Indication: HYPERURICAEMIA
     Route: 048
  9. LOXAN [Concomitant]
  10. CYMBALTA [Concomitant]
  11. LASIX [Concomitant]
     Dosage: 40 MG, UNK
  12. RAMIPRIL [Concomitant]
     Indication: RENAL FAILURE
     Route: 048
  13. PLAVIX [Concomitant]
     Indication: PERIPHERAL ARTERIAL OCCLUSIVE DISEASE
     Route: 048
  14. PLAVIX [Concomitant]
     Indication: ISCHAEMIC CARDIOMYOPATHY
  15. RAMIPRIL [Concomitant]
     Indication: ISCHAEMIC CARDIOMYOPATHY
  16. LERCANIDIPINE [Concomitant]

REACTIONS (3)
  - LIP OEDEMA [None]
  - FACE OEDEMA [None]
  - ANGIOEDEMA [None]
